FAERS Safety Report 21257757 (Version 1)
Quarter: 2022Q3

REPORT INFORMATION
  Report Type: Spontaneous
  Country: CN (occurrence: None)
  Receive Date: 20220826
  Receipt Date: 20220826
  Transmission Date: 20221027
  Serious: Yes (Other)
  Sender: FDA-Public Use
  Company Number: CN-ROCHE-3167315

PATIENT
  Age: 57 Year
  Sex: Female
  Weight: 65 kg

DRUGS (1)
  1. AVASTIN [Suspect]
     Active Substance: BEVACIZUMAB
     Indication: Breast cancer
     Route: 041
     Dates: start: 20220811, end: 20220811

REACTIONS (3)
  - Nausea [Recovering/Resolving]
  - Asthenia [Recovering/Resolving]
  - Off label use [Unknown]

NARRATIVE: CASE EVENT DATE: 20220814
